FAERS Safety Report 20705502 (Version 1)
Quarter: 2022Q2

REPORT INFORMATION
  Report Type: Spontaneous
  Country: ES (occurrence: ES)
  Receive Date: 20220413
  Receipt Date: 20220413
  Transmission Date: 20220721
  Serious: Yes (Other)
  Sender: FDA-Public Use
  Company Number: ES-AMICUS THERAPEUTICS, INC.-AMI_1769

PATIENT
  Age: 60 Year
  Sex: Female

DRUGS (1)
  1. GALAFOLD [Suspect]
     Active Substance: MIGALASTAT HYDROCHLORIDE
     Indication: Fabry^s disease
     Dosage: UNK
     Route: 048
     Dates: start: 201810

REACTIONS (2)
  - Non-Hodgkin^s lymphoma [Unknown]
  - Blood creatine phosphokinase increased [Unknown]

NARRATIVE: CASE EVENT DATE: 20210901
